FAERS Safety Report 4294306-7 (Version None)
Quarter: 2004Q1

REPORT INFORMATION
  Report Type: 
  Country: None (occurrence: None)
  Receive Date: 20040211
  Receipt Date: 20040209
  Transmission Date: 20041129
  Serious: Yes (Death)
  Sender: FDA-Public Use
  Company Number: USA-2002-0000498

PATIENT
  Age: 65 Year
  Sex: Male

DRUGS (7)
  1. OXYCONTIN [Suspect]
     Indication: PAIN
     Dosage: 80 MG, BID, ORAL
     Route: 048
     Dates: start: 19990101, end: 20020318
  2. OXYCONTIN [Suspect]
     Indication: PAIN
     Dosage: 40 MG, DAILY, ORAL
     Route: 048
     Dates: start: 19990101, end: 20020318
  3. HYDROCODONE BITARTRATE [Suspect]
     Indication: PAIN
     Dosage: ORAL
     Route: 048
     Dates: end: 20020318
  4. DIHYDROCODEINE/CAFFEINE/ACETAMINOPHEN(SIMILAR TON ANDA 88-584)(DIHYDRO [Suspect]
  5. THEOBROMINE(THEOBROMINE) UNKNOWN [Suspect]
  6. NICOTINE [Suspect]
  7. CAFFEINE(CAFFEINE) UNKNOWN [Suspect]

REACTIONS (4)
  - COMPLETED SUICIDE [None]
  - DRUG SCREEN POSITIVE [None]
  - GUN SHOT WOUND [None]
  - HEAD INJURY [None]
